FAERS Safety Report 5174314-4 (Version None)
Quarter: 2006Q4

REPORT INFORMATION
  Report Type: 
  Country: None (occurrence: None)
  Receive Date: 20061206
  Receipt Date: 20061129
  Transmission Date: 20070319
  Serious: Yes (Hospitalization)
  Sender: FDA-Public Use
  Company Number: E2020-00745-SPO-US

PATIENT
  Age: 82 Year
  Sex: Female
  Weight: 41 kg

DRUGS (4)
  1. ARICEPT [Suspect]
     Indication: DEMENTIA ALZHEIMER'S TYPE
     Dosage: 10 MG, 1 IN 1 D, ORAL; 20 MG, 2 IN 1 D, ORAL
     Route: 048
     Dates: start: 20051101, end: 20061101
  2. ARICEPT [Suspect]
     Indication: DEMENTIA ALZHEIMER'S TYPE
     Dosage: 10 MG, 1 IN 1 D, ORAL; 20 MG, 2 IN 1 D, ORAL
     Route: 048
     Dates: start: 20061101, end: 20061101
  3. ARICEPT [Suspect]
     Indication: DEMENTIA ALZHEIMER'S TYPE
     Dosage: 10 MG, 1 IN 1 D, ORAL; 20 MG, 2 IN 1 D, ORAL
     Route: 048
     Dates: start: 20061101
  4. NAMENDA [Concomitant]

REACTIONS (3)
  - AGITATION [None]
  - FAILURE TO THRIVE [None]
  - ORAL INTAKE REDUCED [None]
